FAERS Safety Report 7607285-9 (Version None)
Quarter: 2011Q3

REPORT INFORMATION
  Report Type: 
  Country: None (occurrence: None)
  Receive Date: 20110713
  Receipt Date: 20110630
  Transmission Date: 20111222
  Serious: Yes (Hospitalization)
  Sender: FDA-Public Use
  Company Number: PHHY2011FR29744

PATIENT

DRUGS (1)
  1. RASILEZ [Suspect]
     Dosage: UNK
     Route: 048

REACTIONS (1)
  - MALIGNANT HYPERTENSION [None]
